FAERS Safety Report 11942273 (Version 1)
Quarter: 2016Q1

REPORT INFORMATION
  Report Type: Spontaneous
  Country: US (occurrence: US)
  Receive Date: 20160125
  Receipt Date: 20160125
  Transmission Date: 20160526
  Serious: No
  Sender: FDA-Public Use
  Company Number: US-APOTEX-2015AP015552

PATIENT
  Age: 72 Year
  Sex: Male

DRUGS (2)
  1. ONDANSETRON INJECTION USP [Suspect]
     Active Substance: ONDANSETRON
     Dosage: 4MG
     Route: 042
  2. ONDANSETRON INJECTION USP [Suspect]
     Active Substance: ONDANSETRON
     Indication: NAUSEA
     Dosage: 4MG
     Route: 042

REACTIONS (1)
  - Extrapyramidal disorder [Recovered/Resolved]
